FAERS Safety Report 6824528-X (Version None)
Quarter: 2010Q3

REPORT INFORMATION
  Report Type: 
  Country: None (occurrence: None)
  Receive Date: 20100708
  Receipt Date: 20100701
  Transmission Date: 20110219
  Serious: Yes (Other)
  Sender: FDA-Public Use
  Company Number: KR-MERCK-1007KOR00004B1

PATIENT
  Age: 1 Year

DRUGS (1)
  1. PROPECIA [Suspect]
     Route: 065

REACTIONS (1)
  - CARDIAC DISORDER [None]
